FAERS Safety Report 5802136-7 (Version None)
Quarter: 2008Q3

REPORT INFORMATION
  Report Type: 
  Country: None (occurrence: None)
  Receive Date: 20080707
  Receipt Date: 20080626
  Transmission Date: 20090109
  Serious: Yes (Death)
  Sender: FDA-Public Use
  Company Number: FR-ROCHE-553206

PATIENT
  Sex: Female
  Weight: 41 kg

DRUGS (10)
  1. CAPECITABINE [Suspect]
     Indication: BREAST CANCER
     Route: 048
     Dates: start: 20071222, end: 20080201
  2. SUNITINIB [Suspect]
     Indication: BREAST CANCER
     Route: 048
     Dates: start: 20071222, end: 20080201
  3. SUNITINIB [Suspect]
     Route: 048
     Dates: start: 20080208, end: 20080201
  4. FOSAMAX [Concomitant]
     Route: 048
     Dates: start: 19970101, end: 20080201
  5. LEVOTHYROX [Concomitant]
     Route: 048
     Dates: start: 19970101, end: 20080201
  6. GAVISCON [Concomitant]
     Route: 048
     Dates: start: 20050101, end: 20080201
  7. LYSANXIA [Concomitant]
     Route: 048
     Dates: start: 20070601, end: 20080201
  8. ZOLPIDEM [Concomitant]
     Route: 048
     Dates: start: 19970101, end: 20080201
  9. GLYCO-THYMOLIN [Concomitant]
     Route: 048
     Dates: start: 20080115, end: 20080220
  10. SODIUM BICARBONATE [Concomitant]
     Route: 048
     Dates: start: 20080115, end: 20080220

REACTIONS (1)
  - DEATH [None]
